FAERS Safety Report 24551149 (Version 2)
Quarter: 2024Q4

REPORT INFORMATION
  Report Type: Spontaneous
  Country: ES (occurrence: ES)
  Receive Date: 20241025
  Receipt Date: 20241106
  Transmission Date: 20250115
  Serious: Yes (Death, Hospitalization, Other)
  Sender: PFIZER
  Company Number: None

PATIENT
  Age: 9 Year
  Sex: Female

DRUGS (2)
  1. METHOTREXATE SODIUM [Suspect]
     Active Substance: METHOTREXATE SODIUM
     Dosage: UNK
     Route: 042
     Dates: start: 19910801
  2. CYCLOSPORINE [Suspect]
     Active Substance: CYCLOSPORINE
     Indication: Complications of transplant surgery
     Dosage: UNK
     Route: 042
     Dates: start: 19910801, end: 19910822

REACTIONS (13)
  - Blindness [Fatal]
  - Seizure [Fatal]
  - Confusional state [Fatal]
  - Somnolence [Fatal]
  - Urinary incontinence [Fatal]
  - Anal incontinence [Fatal]
  - Aggression [Fatal]
  - Cardiac arrest [Fatal]
  - Respiratory arrest [Unknown]
  - Vision blurred [Unknown]
  - Disorientation [Unknown]
  - Agitation [Unknown]
  - Headache [Unknown]

NARRATIVE: CASE EVENT DATE: 19910821
